FAERS Safety Report 5919827-X (Version None)
Quarter: 2008Q4

REPORT INFORMATION
  Report Type: 
  Country: None (occurrence: None)
  Receive Date: 20081015
  Receipt Date: 20081006
  Transmission Date: 20090506
  Serious: Yes (Death, Hospitalization)
  Sender: FDA-Public Use
  Company Number: US-PFIZER INC-2008083595

PATIENT
  Sex: Male
  Weight: 78 kg

DRUGS (3)
  1. IRINOTECAN HCL [Suspect]
     Indication: SMALL CELL LUNG CANCER STAGE UNSPECIFIED
     Route: 042
     Dates: start: 20080915
  2. SU-011,248 [Suspect]
     Indication: SMALL CELL LUNG CANCER STAGE UNSPECIFIED
     Route: 048
     Dates: start: 20081002
  3. CARBOPLATIN [Suspect]
     Indication: SMALL CELL LUNG CANCER STAGE UNSPECIFIED
     Dosage: TEXT:AUC 4
     Route: 042
     Dates: start: 20080908

REACTIONS (5)
  - CARDIAC FAILURE CONGESTIVE [None]
  - HYPONATRAEMIA [None]
  - LEUKOPENIA [None]
  - NEUTROPENIC SEPSIS [None]
  - THROMBOCYTOPENIA [None]
